FAERS Safety Report 5274458-2 (Version None)
Quarter: 2007Q1

REPORT INFORMATION
  Report Type: 
  Country: None (occurrence: None)
  Receive Date: 20070320
  Receipt Date: 20070313
  Transmission Date: 20070707
  Serious: Yes (Hospitalization, Other)
  Sender: FDA-Public Use
  Company Number: 234917

PATIENT
  Age: 43 Year
  Sex: Male

DRUGS (9)
  1. AVASTIN [Suspect]
     Indication: COLON CANCER
     Dosage: 360 MG, Q2W, INTRAVENOUS
     Route: 042
     Dates: start: 20061114
  2. FLUOROURACIL [Concomitant]
  3. LEUCOVORIN CALCIUM [Concomitant]
  4. OXALIPLATIN [Concomitant]
  5. SUSTIVA [Concomitant]
  6. REGLAN [Concomitant]
  7. COMBIVIR [Concomitant]
  8. ANZEMET [Concomitant]
  9. LOPERAMIDE [Concomitant]

REACTIONS (1)
  - ABDOMINAL ADHESIONS [None]
